FAERS Safety Report 4328407-1 (Version None)
Quarter: 2004Q1

REPORT INFORMATION
  Report Type: 
  Country: None (occurrence: None)
  Receive Date: 20040325
  Receipt Date: 20030624
  Transmission Date: 20041129
  Serious: No
  Sender: FDA-Public Use
  Company Number: TAP2003Q01541

PATIENT
  Age: 90 Year
  Sex: Male
  Weight: 73.4827 kg

DRUGS (3)
  1. LUPRON DEPOT [Suspect]
     Indication: PROSTATE CANCER
     Dosage: 7.5 MG, 1 IN 1 M, INTRAMUSCULAR; 22.5 MG, 1 IN 3 M, INTRAMUSCULAR; 30 MG, 1 IN 4 M, INTRAMUSCULAR
     Route: 030
     Dates: start: 19950101, end: 19980101
  2. LUPRON DEPOT [Suspect]
     Indication: PROSTATE CANCER
     Dosage: 7.5 MG, 1 IN 1 M, INTRAMUSCULAR; 22.5 MG, 1 IN 3 M, INTRAMUSCULAR; 30 MG, 1 IN 4 M, INTRAMUSCULAR
     Route: 030
     Dates: start: 19980101, end: 19990101
  3. LUPRON DEPOT [Suspect]
     Indication: PROSTATE CANCER
     Dosage: 7.5 MG, 1 IN 1 M, INTRAMUSCULAR; 22.5 MG, 1 IN 3 M, INTRAMUSCULAR; 30 MG, 1 IN 4 M, INTRAMUSCULAR
     Route: 030
     Dates: start: 19990101, end: 20020601

REACTIONS (4)
  - AMNESIA [None]
  - ATRIAL FIBRILLATION [None]
  - DIFFICULTY IN WALKING [None]
  - LIBIDO DECREASED [None]
